FAERS Safety Report 17106690 (Version 1)
Quarter: 2019Q4

REPORT INFORMATION
  Report Type: Spontaneous
  Country: US (occurrence: US)
  Receive Date: 20191203
  Receipt Date: 20191203
  Transmission Date: 20200122
  Serious: Yes (Other)
  Sender: FDA-Public Use
  Company Number: US-BAYER-2019-213574

PATIENT
  Sex: Female

DRUGS (2)
  1. ASPIRIN (PAIN AND FEVER) [Suspect]
     Active Substance: ASPIRIN
     Dosage: UNK
  2. TIKOSYN [Concomitant]
     Active Substance: DOFETILIDE
     Indication: CREATININE RENAL CLEARANCE ABNORMAL
     Dosage: 250 ?G, BID
     Route: 048

REACTIONS (2)
  - Drug hypersensitivity [Unknown]
  - Gastrointestinal haemorrhage [Unknown]

NARRATIVE: CASE EVENT DATE: 20161111
